FAERS Safety Report 14935977 (Version 1)
Quarter: 2018Q2

REPORT INFORMATION
  Report Type: Spontaneous
  Country: CA (occurrence: CA)
  Receive Date: 20180524
  Receipt Date: 20180524
  Transmission Date: 20180711
  Serious: Yes (Hospitalization, Other)
  Sender: FDA-Public Use
  Company Number: CA-PFIZER INC-2018208120

PATIENT
  Sex: Female

DRUGS (3)
  1. PACLITAXEL. [Suspect]
     Active Substance: PACLITAXEL
     Dosage: UNK (SECOND CYCLE)
     Dates: start: 20180502
  2. GRASTOFIL [Suspect]
     Active Substance: FILGRASTIM
     Dosage: UNK
  3. PACLITAXEL. [Suspect]
     Active Substance: PACLITAXEL
     Indication: BREAST CANCER FEMALE
     Dosage: UNK (FIRST CYCLE)
     Dates: start: 20180418

REACTIONS (23)
  - Pyrexia [Unknown]
  - Joint swelling [Not Recovered/Not Resolved]
  - Decreased appetite [Unknown]
  - Pain in extremity [Unknown]
  - Contusion [Unknown]
  - Pollakiuria [Unknown]
  - Nausea [Unknown]
  - Arthralgia [Not Recovered/Not Resolved]
  - Dry skin [Unknown]
  - Sinus tachycardia [Unknown]
  - Hepatic steatosis [Unknown]
  - Dysgeusia [Unknown]
  - Mass [Unknown]
  - Leukocytosis [Unknown]
  - Bone pain [Unknown]
  - Peripheral swelling [Unknown]
  - Sepsis [Recovered/Resolved]
  - Myalgia [Unknown]
  - Dysuria [Unknown]
  - Urinary tract infection [Recovered/Resolved]
  - Abdominal pain upper [Recovered/Resolved]
  - Urine odour abnormal [Unknown]
  - Hyperhidrosis [Unknown]

NARRATIVE: CASE EVENT DATE: 20180418
